FAERS Safety Report 5098294-5 (Version None)
Quarter: 2006Q3

REPORT INFORMATION
  Report Type: 
  Country: None (occurrence: None)
  Receive Date: 20060906
  Receipt Date: 20060613
  Transmission Date: 20061208
  Serious: No
  Sender: FDA-Public Use
  Company Number: US-GLAXOSMITHKLINE-A0610500A

PATIENT
  Age: 66 Year
  Sex: Male

DRUGS (17)
  1. REQUIP [Suspect]
     Indication: RESTLESS LEGS SYNDROME
     Dosage: 3MG PER DAY
     Route: 048
     Dates: start: 20060307, end: 20060501
  2. WELLBUTRIN XL [Concomitant]
  3. LORAZEPAM [Concomitant]
  4. CARDIZEM CD [Concomitant]
  5. ALLOPURINOL [Concomitant]
  6. GLYSET [Concomitant]
  7. ADVAIR DISKUS 100/50 [Concomitant]
  8. PLAVIX [Concomitant]
  9. COREG [Concomitant]
  10. LISINOPRIL [Concomitant]
  11. LASIX [Concomitant]
  12. VYTORIN [Concomitant]
  13. ALBUTEROL [Concomitant]
  14. CLONIDINE [Concomitant]
  15. TAPAZOLE [Concomitant]
  16. ASPIRIN [Concomitant]
  17. COMBIVENT [Concomitant]

REACTIONS (1)
  - RESTLESS LEGS SYNDROME [None]
